FAERS Safety Report 5030287-6 (Version None)
Quarter: 2006Q2

REPORT INFORMATION
  Report Type: 
  Country: None (occurrence: None)
  Receive Date: 20060615
  Receipt Date: 20060605
  Transmission Date: 20061013
  Serious: Yes (Other)
  Sender: FDA-Public Use
  Company Number: 200613915BWH

PATIENT
  Sex: Male
  Weight: 66.2252 kg

DRUGS (5)
  1. NEXAVAR [Suspect]
     Indication: RENAL CELL CARCINOMA STAGE UNSPECIFIED
     Dosage: SEE  IMAGE
     Route: 048
     Dates: start: 20051125, end: 20060201
  2. NEXAVAR [Suspect]
     Indication: RENAL CELL CARCINOMA STAGE UNSPECIFIED
     Dosage: SEE  IMAGE
     Route: 048
     Dates: start: 20060201, end: 20060413
  3. AVANDIA [Concomitant]
  4. GLUCOTROL [Concomitant]
  5. ASPIRIN [Concomitant]

REACTIONS (4)
  - CARDIAC FAILURE CONGESTIVE [None]
  - CARDIOMYOPATHY [None]
  - DIARRHOEA [None]
  - RASH [None]
